FAERS Safety Report 6372930-5 (Version None)
Quarter: 2009Q3

REPORT INFORMATION
  Report Type: 
  Country: None (occurrence: None)
  Receive Date: 20090924
  Receipt Date: 20090918
  Transmission Date: 20100115
  Serious: Yes (Death)
  Sender: FDA-Public Use
  Company Number: US-CELGENEUS-163-21880-09091522

PATIENT
  Sex: Female

DRUGS (3)
  1. REVLIMID [Suspect]
     Route: 048
     Dates: start: 20090501, end: 20090812
  2. REVLIMID [Suspect]
     Route: 048
     Dates: start: 20071201
  3. REVLIMID [Suspect]
     Dosage: 15MG-25MG
     Route: 048
     Dates: start: 20070607

REACTIONS (1)
  - DEATH [None]
